FAERS Safety Report 6831604-4 (Version None)
Quarter: 2010Q3

REPORT INFORMATION
  Report Type: 
  Country: None (occurrence: None)
  Receive Date: 20100712
  Receipt Date: 20100630
  Transmission Date: 20110219
  Serious: Yes (Other)
  Sender: FDA-Public Use
  Company Number: PHHY2010BR15011

PATIENT
  Sex: Male
  Weight: 75 kg

DRUGS (4)
  1. ZELMAC [Suspect]
     Indication: IRRITABLE BOWEL SYNDROME
     Dosage: TWO TABLETS DAILY (ONE IN THE MORNING AND NIGHT)
     Route: 048
  2. ZELMAC [Suspect]
     Dosage: 1 TABLET DAILY IN THE MORNING
     Route: 048
  3. PANTOPRAZOLE [Concomitant]
     Dosage: 1 TABLET IN MORNING AND NIGHT
     Route: 048
  4. RIVOTRIL [Concomitant]
     Dosage: 12 OR 15 DROP

REACTIONS (6)
  - ABDOMINAL PAIN [None]
  - DRUG ADMINISTRATION ERROR [None]
  - PROSTATE CANCER [None]
  - PROSTATIC SPECIFIC ANTIGEN INCREASED [None]
  - SURGERY [None]
  - WEIGHT DECREASED [None]
